FAERS Safety Report 14466353 (Version 3)
Quarter: 2018Q2

REPORT INFORMATION
  Report Type: Report from Study
  Country: US (occurrence: US)
  Receive Date: 20180131
  Receipt Date: 20180424
  Transmission Date: 20180711
  Serious: Yes (Hospitalization, Other)
  Sender: FDA-Public Use
  Company Number: US-GILEAD-2018-0318404

PATIENT
  Age: 61 Year
  Sex: Male
  Weight: 137 kg

DRUGS (9)
  1. FLONASE                            /00908302/ [Concomitant]
     Active Substance: MOMETASONE FUROATE
  2. SPIRIVA [Concomitant]
     Active Substance: TIOTROPIUM BROMIDE MONOHYDRATE
  3. DOFETILIDE. [Concomitant]
     Active Substance: DOFETILIDE
  4. AMBRISENTAN [Suspect]
     Active Substance: AMBRISENTAN
     Indication: PULMONARY HYPERTENSION
     Dosage: 5 MG, QD
     Route: 048
     Dates: start: 20180116
  5. SYMBICORT [Concomitant]
     Active Substance: BUDESONIDE\FORMOTEROL FUMARATE DIHYDRATE
  6. METOPROLOL SUCCINATE. [Concomitant]
     Active Substance: METOPROLOL SUCCINATE
  7. DOCUSATE [Concomitant]
     Active Substance: DOCUSATE
  8. ADCIRCA [Concomitant]
     Active Substance: TADALAFIL
  9. APIXABAN [Concomitant]
     Active Substance: APIXABAN

REACTIONS (8)
  - Respiratory failure [Unknown]
  - Fluid overload [Recovered/Resolved]
  - Pulmonary oedema [Unknown]
  - Cardiac disorder [Unknown]
  - Cardiac failure [Unknown]
  - Pneumonia [Unknown]
  - Weight increased [Unknown]
  - Oedema peripheral [Unknown]

NARRATIVE: CASE EVENT DATE: 20180205
